FAERS Safety Report 24013610 (Version 1)
Quarter: 2024Q2

REPORT INFORMATION
  Report Type: Spontaneous
  Country: US (occurrence: US)
  Receive Date: 20240626
  Receipt Date: 20240626
  Transmission Date: 20240716
  Serious: No
  Sender: FDA-Public Use
  Company Number: US-009507513-2406USA001678

PATIENT
  Sex: Female

DRUGS (1)
  1. TEMODAR [Suspect]
     Active Substance: TEMOZOLOMIDE
     Indication: Uterine leiomyosarcoma
     Dosage: 140 MILLIGRAM, QD FOR 21 DAYS
     Route: 048

REACTIONS (9)
  - Gait inability [Unknown]
  - Bone pain [Unknown]
  - Full blood count decreased [Unknown]
  - Pain [Unknown]
  - Myalgia [Unknown]
  - Balance disorder [Unknown]
  - Asthenia [Unknown]
  - Product prescribing issue [Unknown]
  - Product use in unapproved indication [Unknown]
